FAERS Safety Report 8970005 (Version 1)
Quarter: 2012Q4

REPORT INFORMATION
  Report Type: 
  Country: US (occurrence: US)
  Receive Date: 20121218
  Receipt Date: 20121218
  Transmission Date: 20130627
  Serious: No
  Sender: FDA-Public Use
  Company Number: US-BRISTOL-MYERS SQUIBB COMPANY-16525735

PATIENT
  Age: 44 Year
  Sex: Female
  Weight: 53.51 kg

DRUGS (1)
  1. ABILIFY [Suspect]
     Indication: DEPRESSION
     Dosage: 1DF= 5mg for 2 days and 10mg on the other day

REACTIONS (6)
  - Hunger [Unknown]
  - Musculoskeletal stiffness [Recovering/Resolving]
  - Pain [Unknown]
  - Insomnia [Unknown]
  - Night sweats [Unknown]
  - Feeling abnormal [Unknown]
